FAERS Safety Report 5973644-3 (Version None)
Quarter: 2008Q4

REPORT INFORMATION
  Report Type: 
  Country: None (occurrence: None)
  Receive Date: 20081201
  Receipt Date: 20081125
  Transmission Date: 20090506
  Serious: Yes (Death)
  Sender: FDA-Public Use
  Company Number: AE-SANOFI-SYNTHELABO-F01200801714

PATIENT

DRUGS (1)
  1. KAYEXALATE [Suspect]
     Indication: HYPERKALAEMIA
     Route: 054

REACTIONS (1)
  - INTESTINAL PERFORATION [None]
